FAERS Safety Report 6073021-3 (Version None)
Quarter: 2009Q1

REPORT INFORMATION
  Report Type: 
  Country: None (occurrence: None)
  Receive Date: 20090209
  Receipt Date: 20090209
  Transmission Date: 20090719
  Serious: Yes (Life-Threatening, Hospitalization, Disabling)
  Sender: FDA-Public Use
  Company Number: None

PATIENT
  Sex: Female
  Weight: 81.6475 kg

DRUGS (1)
  1. TRILEPTAL [Suspect]
     Indication: BIPOLAR DISORDER
     Dosage: 200MG ONCE DAILY PO
     Route: 048
     Dates: start: 20040601, end: 20060606

REACTIONS (2)
  - BLOOD SODIUM DECREASED [None]
  - SYNCOPE [None]
